FAERS Safety Report 21391158 (Version 1)
Quarter: 2022Q3

REPORT INFORMATION
  Report Type: Spontaneous
  Country: RU (occurrence: None)
  Receive Date: 20220929
  Receipt Date: 20220929
  Transmission Date: 20221027
  Serious: Yes (Other)
  Sender: FDA-Public Use
  Company Number: RU-ROCHE-3188496

PATIENT
  Age: 69 Year
  Sex: Female

DRUGS (1)
  1. TRASTUZUMAB [Suspect]
     Active Substance: TRASTUZUMAB
     Indication: Breast cancer
     Route: 065

REACTIONS (2)
  - Disease progression [Unknown]
  - Metastases to liver [Unknown]
